FAERS Safety Report 7605775-6 (Version None)
Quarter: 2011Q3

REPORT INFORMATION
  Report Type: 
  Country: None (occurrence: None)
  Receive Date: 20110713
  Receipt Date: 20110708
  Transmission Date: 20111222
  Serious: Yes (Other)
  Sender: FDA-Public Use
  Company Number: US-PFIZER INC-2011154614

PATIENT
  Sex: Female
  Weight: 72.562 kg

DRUGS (5)
  1. XANAX [Suspect]
     Indication: ANXIETY
     Dosage: UNK, 3X/DAY
     Route: 048
  2. FLEXERIL [Concomitant]
     Dosage: UNK
  3. NITROSTAT [Suspect]
     Indication: CHEST PAIN
     Dosage: 0.4 MG, AS NEEDED
     Route: 048
  4. ZOLOFT [Suspect]
     Indication: DEPRESSION
     Dosage: 100 MG, 1X/DAY
     Route: 048
  5. HYDROCODONE [Concomitant]
     Indication: BACK DISORDER
     Dosage: UNK

REACTIONS (5)
  - MEMORY IMPAIRMENT [None]
  - GALLBLADDER DISORDER [None]
  - MYOCARDIAL INFARCTION [None]
  - CHEST PAIN [None]
  - ARTERIAL OCCLUSIVE DISEASE [None]
